FAERS Safety Report 4996867-9 (Version None)
Quarter: 2006Q2

REPORT INFORMATION
  Report Type: 
  Country: None (occurrence: None)
  Receive Date: 20060508
  Receipt Date: 20060508
  Transmission Date: 20061013
  Serious: Yes (Hospitalization)
  Sender: FDA-Public Use
  Company Number: None

PATIENT
  Age: 50 Year
  Sex: Male
  Weight: 97 kg

DRUGS (2)
  1. GATIFLOXACIN [Suspect]
     Indication: INFECTION
     Dosage: 400 MG PO DAILY
     Route: 048
     Dates: start: 20060315, end: 20060317
  2. GLYBURIDE [Concomitant]

REACTIONS (3)
  - HYPOGLYCAEMIA [None]
  - INFECTION [None]
  - LOSS OF CONSCIOUSNESS [None]
